FAERS Safety Report 11786393 (Version 1)
Quarter: 2015Q4

REPORT INFORMATION
  Report Type: Spontaneous
  Country: US (occurrence: US)
  Receive Date: 20151130
  Receipt Date: 20151130
  Transmission Date: 20160305
  Serious: Yes (Other)
  Sender: FDA-Public Use
  Company Number: US-TEVA-613247ACC

PATIENT
  Sex: Female
  Weight: 125.3 kg

DRUGS (1)
  1. PARAGARD T 380A [Suspect]
     Active Substance: COPPER
     Indication: CONTRACEPTION
     Dates: start: 20150618, end: 20151118

REACTIONS (3)
  - Muscle spasms [Recovered/Resolved]
  - Vaginal discharge [Unknown]
  - Device dislocation [Recovered/Resolved]
